FAERS Safety Report 11440023 (Version 1)
Quarter: 2015Q3

REPORT INFORMATION
  Report Type: Spontaneous
  Country: US (occurrence: US)
  Receive Date: 20150901
  Receipt Date: 20150901
  Transmission Date: 20151125
  Serious: No
  Sender: FDA-Public Use
  Company Number: US-ROCHE-763001

PATIENT
  Age: 49 Year
  Sex: Female

DRUGS (4)
  1. RIBAVIRIN. [Suspect]
     Active Substance: RIBAVIRIN
     Indication: HEPATITIS C
     Dosage: DIVIDED DOSES
     Route: 048
     Dates: start: 20110227, end: 2011
  2. PEGASYS [Suspect]
     Active Substance: PEGINTERFERON ALFA-2A
     Indication: HEPATITIS C
     Dosage: FORM:PRE-FILLED SYRINGE
     Route: 058
     Dates: start: 20110227, end: 2011
  3. PEGASYS [Suspect]
     Active Substance: PEGINTERFERON ALFA-2A
     Route: 058
  4. RIBAVIRIN. [Suspect]
     Active Substance: RIBAVIRIN
     Route: 048

REACTIONS (18)
  - Insomnia [Unknown]
  - Dyspnoea exertional [Unknown]
  - Nausea [Not Recovered/Not Resolved]
  - Vision blurred [Not Recovered/Not Resolved]
  - Lacrimation increased [Not Recovered/Not Resolved]
  - Eye pruritus [Not Recovered/Not Resolved]
  - Blister [Unknown]
  - Alopecia [Unknown]
  - Abdominal distension [Recovering/Resolving]
  - Back pain [Unknown]
  - Fatigue [Unknown]
  - Rash pruritic [Unknown]
  - Pain [Unknown]
  - Hyperhidrosis [Unknown]
  - Pruritus [Not Recovered/Not Resolved]
  - Epistaxis [Unknown]
  - Increased appetite [Not Recovered/Not Resolved]
  - Vomiting [Not Recovered/Not Resolved]

NARRATIVE: CASE EVENT DATE: 20110227
